FAERS Safety Report 21997334 (Version 5)
Quarter: 2023Q2

REPORT INFORMATION
  Report Type: Report from Study
  Country: CA (occurrence: CA)
  Receive Date: 20230216
  Receipt Date: 20230523
  Transmission Date: 20230721
  Serious: Yes (Hospitalization, Other)
  Sender: FDA-Public Use
  Company Number: CA-JNJFOC-20230226191

PATIENT
  Age: 73 Year
  Sex: Male
  Weight: 67.646 kg

DRUGS (2)
  1. STELARA [Suspect]
     Active Substance: USTEKINUMAB
     Indication: Crohn^s disease
     Dosage: EXPIRY DATE: 31-OCT-2025
     Route: 058
  2. STELARA [Suspect]
     Active Substance: USTEKINUMAB

REACTIONS (10)
  - Localised infection [Not Recovered/Not Resolved]
  - Gastrointestinal bacterial infection [Unknown]
  - Pneumonia bacterial [Unknown]
  - Dyspnoea [Unknown]
  - Mental disorder [Unknown]
  - Fall [Unknown]
  - Skin laceration [Unknown]
  - Contusion [Unknown]
  - Oedema peripheral [Unknown]
  - Asthenia [Unknown]

NARRATIVE: CASE EVENT DATE: 20230511
